FAERS Safety Report 9832138 (Version 1)
Quarter: 2014Q1

REPORT INFORMATION
  Report Type: Spontaneous
  Country: ES (occurrence: ES)
  Receive Date: 20140121
  Receipt Date: 20140121
  Transmission Date: 20141002
  Serious: Yes (Other)
  Sender: FDA-Public Use
  Company Number: ES-MYLANLABS-2014S1000760

PATIENT
  Sex: Male

DRUGS (3)
  1. CETUXIMAB [Suspect]
     Indication: METASTATIC SALIVARY GLAND CANCER
     Dosage: FOR FIRST WK; THEN 250MG/M2
     Route: 065
  2. CETUXIMAB [Suspect]
     Indication: METASTATIC SALIVARY GLAND CANCER
     Dosage: FOR 6 WKS
     Route: 065
  3. PACLITAXEL [Suspect]
     Indication: METASTATIC SALIVARY GLAND CANCER
     Dosage: 6 DOSES
     Route: 065

REACTIONS (3)
  - Skin reaction [Unknown]
  - Folliculitis [Unknown]
  - Erythema [Unknown]
